FAERS Safety Report 9745364 (Version 2)
Quarter: 2013Q4

REPORT INFORMATION
  Report Type: Report from Study
  Country: US (occurrence: US)
  Receive Date: 20131211
  Receipt Date: 20131211
  Transmission Date: 20140711
  Serious: Yes (Hospitalization, Other)
  Sender: FDA-Public Use
  Company Number: US-ROCHE-779201

PATIENT
  Age: 62 Year
  Sex: Female
  Weight: 68.18 kg

DRUGS (4)
  1. BEVACIZUMAB [Suspect]
     Indication: ENDOMETRIAL CANCER
     Dosage: CYCLE 7,OVER 30-90 MINUTES ON DAY1, TOTAL: 1023 MG?LAST ADMINISTERED DATE: 30/MAR/2011
     Route: 042
     Dates: start: 20101207, end: 20110119
  2. BACTRIM [Suspect]
     Indication: URINARY TRACT INFECTION
     Route: 065
  3. IXABEPILONE [Suspect]
     Indication: ENDOMETRIAL CANCER
     Dosage: TOTAL 43 MG, DOSE REDUCED DUE TO NEUROPATHY PER SECTION 6.51?LAST ADMINISTERED DATE: 30/MAR/2011
     Route: 042
     Dates: start: 20101207, end: 20110119
  4. CARBOPLATIN [Suspect]
     Indication: ENDOMETRIAL CANCER
     Dosage: TOTAL: 432 MG, AUC 5 OVER 30 MINS ON DAY1X 6 CYCLES?LAST ADMINISTERED DATE: 30/MAR/2011
     Route: 042
     Dates: start: 20101207, end: 20110330

REACTIONS (11)
  - Constipation [Recovered/Resolved]
  - Haemoglobin decreased [Recovered/Resolved]
  - Dehydration [Recovered/Resolved]
  - Platelet count decreased [Recovered/Resolved]
  - Blood potassium decreased [Recovered/Resolved]
  - Exfoliative rash [Recovered/Resolved]
  - Nausea [Recovered/Resolved]
  - Vomiting [Recovered/Resolved]
  - Presyncope [Recovered/Resolved]
  - Anaemia [Recovered/Resolved]
  - Hypokalaemia [Recovered/Resolved]
